FAERS Safety Report 4340293-2 (Version None)
Quarter: 2004Q2

REPORT INFORMATION
  Report Type: 
  Country: None (occurrence: None)
  Receive Date: 20040406
  Receipt Date: 20040322
  Transmission Date: 20050107
  Serious: Yes (Other)
  Sender: FDA-Public Use
  Company Number: 2250051-2004-00137

PATIENT

DRUGS (1)
  1. RHOGAM [Suspect]
     Dosage: 300UG IM
     Route: 030

REACTIONS (1)
  - AUTISM [None]
